FAERS Safety Report 24409495 (Version 3)
Quarter: 2025Q3

REPORT INFORMATION
  Report Type: Report from Study
  Country: KR (occurrence: KR)
  Receive Date: 20241008
  Receipt Date: 20250810
  Transmission Date: 20251021
  Serious: Yes (Other)
  Sender: ALEXION PHARMACEUTICALS
  Company Number: KR-AstraZeneca-2024A155001

PATIENT
  Age: 79 Year
  Sex: Male
  Weight: 57 kg

DRUGS (18)
  1. DURVALUMAB [Suspect]
     Active Substance: DURVALUMAB
     Indication: Non-small cell lung cancer
     Dates: start: 20231204, end: 20231204
  2. DURVALUMAB [Suspect]
     Active Substance: DURVALUMAB
     Dates: start: 20231218, end: 20231218
  3. DURVALUMAB [Suspect]
     Active Substance: DURVALUMAB
     Dates: start: 20240129, end: 20240129
  4. DURVALUMAB [Suspect]
     Active Substance: DURVALUMAB
     Dates: start: 20240213, end: 20240213
  5. DURVALUMAB [Suspect]
     Active Substance: DURVALUMAB
     Dates: start: 20240226, end: 20240226
  6. DURVALUMAB [Suspect]
     Active Substance: DURVALUMAB
     Dates: start: 20240311, end: 20240311
  7. DURVALUMAB [Suspect]
     Active Substance: DURVALUMAB
     Dates: start: 20240325, end: 20240325
  8. DURVALUMAB [Suspect]
     Active Substance: DURVALUMAB
     Dates: start: 20240408, end: 20240408
  9. DURVALUMAB [Suspect]
     Active Substance: DURVALUMAB
     Dates: start: 20240422, end: 20240422
  10. DURVALUMAB [Suspect]
     Active Substance: DURVALUMAB
     Dates: start: 20240507, end: 20240507
  11. DURVALUMAB [Suspect]
     Active Substance: DURVALUMAB
     Dates: start: 20240520, end: 20240520
  12. DURVALUMAB [Suspect]
     Active Substance: DURVALUMAB
     Dates: start: 20240603, end: 20240603
  13. DURVALUMAB [Suspect]
     Active Substance: DURVALUMAB
     Dates: start: 20240617, end: 20240617
  14. DURVALUMAB [Suspect]
     Active Substance: DURVALUMAB
     Dates: start: 20240701, end: 20240701
  15. Somago plus [Concomitant]
     Indication: Constipation
  16. CLOPIDOGREL BISULFATE [Concomitant]
     Active Substance: CLOPIDOGREL BISULFATE
     Indication: Myocardial ischaemia
  17. AMLODIPINE CAMSYLATE [Concomitant]
     Active Substance: AMLODIPINE CAMSYLATE
     Indication: Myocardial ischaemia
  18. Esomezol dr [Concomitant]
     Indication: Gastrointestinal disorder

REACTIONS (1)
  - Rheumatoid arthritis [Not Recovered/Not Resolved]

NARRATIVE: CASE EVENT DATE: 20240123
